FAERS Safety Report 15091629 (Version 1)
Quarter: 2018Q2

REPORT INFORMATION
  Report Type: Report from Study
  Country: US (occurrence: US)
  Receive Date: 20180629
  Receipt Date: 20180629
  Transmission Date: 20180711
  Serious: No
  Sender: FDA-Public Use
  Company Number: US-AMGEN-USASP2011023667

PATIENT
  Age: 58 Year
  Sex: Female

DRUGS (15)
  1. LOSARTAN. [Concomitant]
     Active Substance: LOSARTAN
     Dosage: 1 MG, QD
  2. DICYCLOMINE                        /00068601/ [Concomitant]
     Active Substance: DICYCLOMINE HYDROCHLORIDE
     Dosage: 4 MG, QD
  3. PROLIA [Suspect]
     Active Substance: DENOSUMAB
     Indication: OSTEOPOROSIS POSTMENOPAUSAL
     Dosage: 60 MG, Q6MO
     Dates: start: 20110322
  4. VESICARE [Concomitant]
     Active Substance: SOLIFENACIN SUCCINATE
     Dosage: 1 MG, QD
  5. BIOTENE (PASTE) [Concomitant]
     Active Substance: SODIUM MONOFLUOROPHOSPHATE
  6. BACLOFEN. [Concomitant]
     Active Substance: BACLOFEN
     Dosage: 3 MG, QD
  7. NABUMETONE. [Concomitant]
     Active Substance: NABUMETONE
     Dosage: 2 MG, QD
  8. TRICOR                             /00090101/ [Concomitant]
     Active Substance: ADENOSINE
     Dosage: 1 MG, QD
  9. FLUTICASONE. [Concomitant]
     Active Substance: FLUTICASONE
     Dosage: 2 ?G, QD
  10. ASPIRIN. [Concomitant]
     Active Substance: ASPIRIN
     Dosage: 1 MG, QD
  11. LYRICA [Concomitant]
     Active Substance: PREGABALIN
     Dosage: 2 MG, QD
  12. LUNESTA [Concomitant]
     Active Substance: ESZOPICLONE
     Dosage: 1 MG, QD
  13. LEVOTHYROXINE. [Concomitant]
     Active Substance: LEVOTHYROXINE
     Dosage: 4 ?G, QD
  14. SINGULAIR [Concomitant]
     Active Substance: MONTELUKAST SODIUM
  15. NEXIUM [Concomitant]
     Active Substance: ESOMEPRAZOLE MAGNESIUM
     Dosage: 2 MG, QD

REACTIONS (4)
  - Mouth ulceration [Unknown]
  - Gingival pain [Unknown]
  - Skin lesion [Unknown]
  - Impaired healing [Unknown]

NARRATIVE: CASE EVENT DATE: 201103
